FAERS Safety Report 6583239-9 (Version None)
Quarter: 2010Q1

REPORT INFORMATION
  Report Type: 
  Country: None (occurrence: None)
  Receive Date: 20100216
  Receipt Date: 20100208
  Transmission Date: 20100710
  Serious: Yes (Death)
  Sender: FDA-Public Use
  Company Number: FR-CELGENEUS-056-C5013-09020910

PATIENT
  Sex: Male
  Weight: 90 kg

DRUGS (12)
  1. CC-5013 [Suspect]
     Indication: MULTIPLE MYELOMA
     Route: 048
     Dates: start: 20081224, end: 20090204
  2. DEXAMETHASONE [Suspect]
     Indication: MULTIPLE MYELOMA
     Route: 048
     Dates: start: 20081224, end: 20090204
  3. PREVISCAN [Concomitant]
     Indication: THROMBOSIS PROPHYLAXIS
     Route: 048
     Dates: end: 20090114
  4. BACTRIM DS [Concomitant]
     Route: 048
     Dates: start: 20081224, end: 20090204
  5. SPECIAFOLDINE [Concomitant]
     Indication: BONE MARROW DISORDER
     Route: 048
     Dates: start: 20081224, end: 20090204
  6. ZELITREX [Concomitant]
     Indication: PROPHYLAXIS
     Route: 048
     Dates: start: 20081224, end: 20090204
  7. HEMIGOXINE NATIVELLE [Concomitant]
     Route: 048
     Dates: start: 20070101, end: 20090204
  8. INIPOMP [Concomitant]
     Indication: PROPHYLAXIS
     Route: 048
     Dates: start: 20081224, end: 20090204
  9. KREDEX [Concomitant]
     Route: 048
     Dates: start: 20070101, end: 20090204
  10. LASILIX [Concomitant]
     Route: 048
     Dates: start: 20081224, end: 20090204
  11. DURAGESIC-100 [Concomitant]
     Indication: PAIN
     Dosage: 25MICROG/H
     Route: 058
     Dates: start: 20081224, end: 20090204
  12. CALCIPARINE [Concomitant]
     Indication: THROMBOSIS PROPHYLAXIS
     Route: 058
     Dates: start: 20090114, end: 20090204

REACTIONS (1)
  - DEATH [None]
